FAERS Safety Report 9523866 (Version 3)
Quarter: 2014Q4

REPORT INFORMATION
  Report Type: Spontaneous
  Country: BR (occurrence: BR)
  Receive Date: 20130916
  Receipt Date: 20141003
  Transmission Date: 20150529
  Serious: Yes (Hospitalization, Other)
  Sender: FDA-Public Use
  Company Number: BR-AMGEN-BRASP2013064494

PATIENT
  Age: 69 Year
  Sex: Female
  Weight: 56 kg

DRUGS (25)
  1. MELOXICAM. [Concomitant]
     Active Substance: MELOXICAM
     Dosage: 15 MG, UNK
  2. CORISTINA D [Concomitant]
     Dosage: UNK
  3. OMEPRAZOLE. [Concomitant]
     Active Substance: OMEPRAZOLE
     Dosage: 20 MG, 2X/DAY
  4. TYLENOL [Concomitant]
     Active Substance: ACETAMINOPHEN
     Indication: PYREXIA
     Dosage: 750 (UNSPECIFIED UNIT), AS NEEDED
  5. ENBREL [Suspect]
     Active Substance: ETANERCEPT
     Indication: PSORIATIC ARTHROPATHY
     Dosage: 50 MG, QWK
     Route: 058
     Dates: start: 201210
  6. ENBREL [Suspect]
     Active Substance: ETANERCEPT
     Dosage: 50 MG, QWK
     Route: 058
     Dates: start: 2013
  7. FLANAX                             /00256202/ [Concomitant]
     Dosage: UNK
  8. BROMAZEPAM [Concomitant]
     Active Substance: BROMAZEPAM
     Dosage: UNK
  9. METHOTREXATE [Concomitant]
     Active Substance: METHOTREXATE
     Dosage: 2.5 (UNSPECIFIED UNIT), 1X/DAY
     Dates: start: 1994
  10. FOLIC ACID. [Concomitant]
     Active Substance: FOLIC ACID
     Dosage: UNK
  11. PRELONE [Concomitant]
     Active Substance: PREDNISOLONE
     Dosage: UNSPECIFIED DOSE, EVERY NIGHT OR AS NEEDED IN THE MORNING
  12. MUSCULARE [Concomitant]
     Indication: INSOMNIA
     Dosage: UNK
  13. ARTRO [Concomitant]
     Dosage: UNK
  14. PRELONE [Concomitant]
     Active Substance: PREDNISOLONE
     Dosage: UNSPECIFIED DOSE, EVERY NIGHT OR AS NEEDED IN THE MORNING
  15. PROFENID LP [Concomitant]
     Active Substance: KETOPROFEN
     Dosage: UNK
  16. STILNOX [Concomitant]
     Active Substance: ZOLPIDEM TARTRATE
     Dosage: UNK
  17. NARAMIG [Concomitant]
     Active Substance: NARATRIPTAN HYDROCHLORIDE
     Dosage: UNSPECIFIED DOSE, AS NEEDED
  18. ALLOPURINOL. [Concomitant]
     Active Substance: ALLOPURINOL
     Dosage: UNK
  19. CALCIUM [Concomitant]
     Active Substance: CALCIUM
     Dosage: UNK
  20. ARTHROTABS [Concomitant]
     Dosage: UNK
  21. CATAFLAM                           /00372302/ [Concomitant]
     Active Substance: DICLOFENAC POTASSIUM
     Dosage: UNK
  22. TANDRILAX [Concomitant]
     Dosage: 2 UNITS, AS NEEDED
  23. RAMIPRIL. [Concomitant]
     Active Substance: RAMIPRIL
     Dosage: 2.5 (UNSPECIFIED UNIT), MAYBE TWO UNITS (NOT CLEARLY REPORTED), ONCE A DAY
  24. OMEPRAZOLE. [Concomitant]
     Active Substance: OMEPRAZOLE
     Dosage: UNK
  25. CODEINE [Concomitant]
     Active Substance: CODEINE
     Dosage: UNK

REACTIONS (16)
  - Skin discolouration [Not Recovered/Not Resolved]
  - Asthenia [Unknown]
  - Onychomadesis [Unknown]
  - Pustular psoriasis [Not Recovered/Not Resolved]
  - Drug ineffective [Unknown]
  - Tooth loss [Unknown]
  - Urinary tract infection [Unknown]
  - Activities of daily living impaired [Not Recovered/Not Resolved]
  - Eye disorder [Unknown]
  - Pyrexia [Unknown]
  - Decreased immune responsiveness [Not Recovered/Not Resolved]
  - Depressed mood [Not Recovered/Not Resolved]
  - Foot deformity [Unknown]
  - Wound infection [Not Recovered/Not Resolved]
  - Hyperpyrexia [Not Recovered/Not Resolved]
  - Erythema [Not Recovered/Not Resolved]

NARRATIVE: CASE EVENT DATE: 2013
